FAERS Safety Report 9167183 (Version 3)
Quarter: 2013Q2

REPORT INFORMATION
  Report Type: Spontaneous
  Country: FR (occurrence: FR)
  Receive Date: 20130318
  Receipt Date: 20130515
  Transmission Date: 20140414
  Serious: Yes (Other)
  Sender: FDA-Public Use
  Company Number: FR-BIOGENIDEC-2013BI025065

PATIENT
  Age: 46 Year
  Sex: Female
  Weight: 77 kg

DRUGS (3)
  1. TYSABRI [Suspect]
     Indication: MULTIPLE SCLEROSIS
     Route: 042
     Dates: start: 20121122, end: 20130122
  2. LOXEN [Concomitant]
     Dates: start: 20120822
  3. PRITOR [Concomitant]
     Dates: start: 20120822

REACTIONS (1)
  - Hodgkin^s disease [Unknown]
